FAERS Safety Report 9144693 (Version 1)
Quarter: 2013Q1

REPORT INFORMATION
  Report Type: Spontaneous
  Country: US (occurrence: US)
  Receive Date: 20130306
  Receipt Date: 20130306
  Transmission Date: 20140127
  Serious: Yes (Hospitalization, Other)
  Sender: FDA-Public Use
  Company Number: US-PFIZER INC-2013073025

PATIENT
  Age: 34 Year
  Sex: Female
  Weight: 58.05 kg

DRUGS (2)
  1. BENEFIX [Suspect]
     Indication: HAEMOPHILIA
     Dosage: 4 IU/KG ON DEMAND USE WHEN THERE IS BLEEDING
  2. BENEFIX [Suspect]
     Indication: FACTOR IX DEFICIENCY

REACTIONS (2)
  - Disease complication [Unknown]
  - Haemorrhage [Unknown]
